FAERS Safety Report 4659830-3 (Version None)
Quarter: 2005Q2

REPORT INFORMATION
  Report Type: 
  Country: None (occurrence: None)
  Receive Date: 20050502
  Receipt Date: 20050311
  Transmission Date: 20051028
  Serious: No
  Sender: FDA-Public Use
  Company Number: 200511546US

PATIENT
  Age: 54 Year
  Sex: Male

DRUGS (4)
  1. KETEK [Suspect]
     Indication: DYSPHAGIA
     Dosage: 800 MG QD PO
     Route: 048
     Dates: start: 20041227, end: 20041231
  2. KETEK [Suspect]
     Indication: PHARYNGOLARYNGEAL PAIN
     Dosage: 800 MG QD PO
     Route: 048
     Dates: start: 20041227, end: 20041231
  3. ALBUTEROL [Concomitant]
  4. AZMACORT [Concomitant]

REACTIONS (2)
  - DISCOMFORT [None]
  - STOMACH DISCOMFORT [None]
